FAERS Safety Report 9249641 (Version 1)
Quarter: 2013Q2

REPORT INFORMATION
  Report Type: Spontaneous
  Country: US (occurrence: US)
  Receive Date: 20130423
  Receipt Date: 20130423
  Transmission Date: 20140414
  Serious: No
  Sender: FDA-Public Use
  Company Number: US-BRISTOL-MYERS SQUIBB COMPANY-17333600

PATIENT
  Age: 70 Year
  Sex: Male
  Weight: 79.36 kg

DRUGS (10)
  1. YERVOY [Suspect]
     Indication: METASTATIC MALIGNANT MELANOMA
     Dosage: 2ND 12DEC12, 4TH 23JAN13
     Dates: start: 20121121
  2. PROPRANOLOL [Concomitant]
  3. LAMICTAL [Concomitant]
  4. AMBIEN [Concomitant]
  5. ETODOLAC [Concomitant]
  6. WELLBUTRIN [Concomitant]
  7. MULTIVITAMIN [Concomitant]
  8. METAMUCIL [Concomitant]
  9. LEVOTHYROXINE [Concomitant]
  10. PERCOCET [Concomitant]

REACTIONS (1)
  - Stomatitis [Not Recovered/Not Resolved]
